FAERS Safety Report 11211467 (Version 1)
Quarter: 2015Q2

REPORT INFORMATION
  Report Type: Spontaneous
  Country: US (occurrence: None)
  Receive Date: 20150622
  Receipt Date: 20150622
  Transmission Date: 20150821
  Serious: Yes (Death)
  Sender: FDA-Public Use
  Company Number: None

PATIENT
  Age: 84 Year
  Sex: Male
  Weight: 107.3 kg

DRUGS (2)
  1. DABIGATRAN [Suspect]
     Active Substance: DABIGATRAN
     Indication: ATRIAL FIBRILLATION
     Route: 048
     Dates: start: 20110511, end: 20110627
  2. DABIGATRAN [Suspect]
     Active Substance: DABIGATRAN
     Indication: ARTERIAL THROMBOSIS
     Route: 048
     Dates: start: 20110511, end: 20110627

REACTIONS (5)
  - Vomiting [None]
  - Megacolon [None]
  - Pyrexia [None]
  - General physical health deterioration [None]
  - Gastrointestinal necrosis [None]

NARRATIVE: CASE EVENT DATE: 20110628
